FAERS Safety Report 21698604 (Version 6)
Quarter: 2023Q2

REPORT INFORMATION
  Report Type: Report from Study
  Country: US (occurrence: US)
  Receive Date: 20221208
  Receipt Date: 20230627
  Transmission Date: 20230721
  Serious: Yes (Other)
  Sender: FDA-Public Use
  Company Number: US-ABBVIE-4227933

PATIENT
  Age: 82 Year
  Sex: Female

DRUGS (15)
  1. VENCLEXTA [Suspect]
     Active Substance: VENETOCLAX
     Indication: Plasma cell myeloma
     Dosage: TOOK 4 TABS WITH A MEAL AND WATER AT THE SAME TIME EACH DAY, SWALLOW WHOLE. DO NOT CHEW, CRUSH OR...
     Route: 048
     Dates: start: 20221110
  2. VENCLEXTA [Suspect]
     Active Substance: VENETOCLAX
     Indication: Plasma cell myeloma
     Dosage: FORM STRENGTH- 100 MILLIGRAM
     Route: 048
  3. VENCLEXTA [Suspect]
     Active Substance: VENETOCLAX
     Indication: Plasma cell myeloma
     Dosage: 3 TABLETS PER DAY?FORM STRENGTH- 100 MG
     Route: 048
  4. VENCLEXTA [Suspect]
     Active Substance: VENETOCLAX
     Indication: Plasma cell myeloma
     Route: 048
  5. VENCLEXTA [Suspect]
     Active Substance: VENETOCLAX
     Indication: Plasma cell myeloma
     Route: 048
  6. CHOLECALCIFEROL [Concomitant]
     Active Substance: CHOLECALCIFEROL
     Indication: Product used for unknown indication
     Dosage: STRENGTH: 25 MCG(1000UNIT) TABLET
     Dates: start: 20220719
  7. ZOVIRAX [Concomitant]
     Active Substance: ACYCLOVIR
     Indication: Product used for unknown indication
     Dosage: STRENGTH 400 MG
     Route: 048
     Dates: start: 20220718
  8. SENNOSIDES [Concomitant]
     Active Substance: SENNOSIDES
     Indication: Product used for unknown indication
     Dosage: 8.6MG TABLET
     Route: 048
  9. DECADRON [Concomitant]
     Active Substance: DEXAMETHASONE
     Indication: Product used for unknown indication
     Dosage: TAKE 2.5 TABLETS ONCE A WEEK. TAKE ON DAYS 1, 8, 15 AND 22. IF IT IS A DAY YOU ARE RECEIVING DARA...
     Route: 048
     Dates: start: 20220829
  10. DECADRON [Concomitant]
     Active Substance: DEXAMETHASONE
     Indication: Product used for unknown indication
     Dosage: TAKE 2.5 TABLETS ONCE A WEEK. TAKE ON DAYS 1, 8, 15 AND 22. IF IT IS A DAY YOU ARE RECEIVING DARA...
     Route: 048
     Dates: start: 20221123
  11. CALCIUM CITRATE\CHOLECALCIFEROL [Concomitant]
     Active Substance: CALCIUM CITRATE\CHOLECALCIFEROL
     Indication: Product used for unknown indication
     Dosage: 1500 MG (600MG CALCIUM-10MCG) TABLET
     Route: 048
  12. CALCIUM CITRATE\CHOLECALCIFEROL [Concomitant]
     Active Substance: CALCIUM CITRATE\CHOLECALCIFEROL
     Indication: Product used for unknown indication
     Dosage: 400 UNIT TAKE 1 TABLET WITH BREAKFAST
  13. CALCIUM CITRATE\CHOLECALCIFEROL [Concomitant]
     Active Substance: CALCIUM CITRATE\CHOLECALCIFEROL
     Indication: Product used for unknown indication
     Dosage: 400 UNIT CHEW 1 TABLET DAILY
     Dates: start: 20220713
  14. DEMADEX [Concomitant]
     Active Substance: TORSEMIDE
     Indication: Product used for unknown indication
     Dosage: TAKE 1-2 TABLETS (20-40 MG TOTAL) AS DIRECTED. ALTERNATE 1 TABLET (20MG) WITH 2 TABLETS (40MG) EV...
     Route: 048
  15. DEMADEX [Concomitant]
     Active Substance: TORSEMIDE
     Indication: Product used for unknown indication
     Dosage: TAKE 1-2 TABLETS (20-40 MG TOTAL) AS DIRECTED. ALTERNATE 1 TABLET (20MG) WITH 2 TABLETS (40MG) EV...
     Route: 048

REACTIONS (5)
  - Cellulitis [Unknown]
  - Off label use [Unknown]
  - COVID-19 [Unknown]
  - Hypoacusis [Unknown]
  - Decreased appetite [Unknown]

NARRATIVE: CASE EVENT DATE: 20221201
